FAERS Safety Report 6888064-7 (Version None)
Quarter: 2010Q3

REPORT INFORMATION
  Report Type: 
  Country: None (occurrence: None)
  Receive Date: 20100727
  Receipt Date: 20100720
  Transmission Date: 20110219
  Serious: Yes (Hospitalization)
  Sender: FDA-Public Use
  Company Number: 2010SP006362

PATIENT
  Age: 53 Year
  Sex: Female

DRUGS (3)
  1. PEG-INTRON [Suspect]
     Indication: HEPATITIS C
     Dosage: 80 MCG;QW;SC
     Route: 058
     Dates: start: 20091111, end: 20100109
  2. REBETOL [Suspect]
     Indication: HEPATITIS C
     Dosage: 600 MG;QD;PO
     Route: 048
     Dates: start: 20091111, end: 20100109
  3. LOXONIN [Concomitant]

REACTIONS (4)
  - ARTHRITIS REACTIVE [None]
  - AUTOIMMUNE DISORDER [None]
  - GAIT DISTURBANCE [None]
  - RHEUMATOID ARTHRITIS [None]
